FAERS Safety Report 9098747 (Version 1)
Quarter: 2013Q1

REPORT INFORMATION
  Report Type: Spontaneous
  Country: JP (occurrence: JP)
  Receive Date: 20130213
  Receipt Date: 20130213
  Transmission Date: 20140127
  Serious: Yes (Other)
  Sender: FDA-Public Use
  Company Number: JP-PFIZER INC-2013030825

PATIENT
  Age: 73 Year
  Sex: Male

DRUGS (5)
  1. SELARA [Suspect]
     Indication: HYPERTENSION
     Dosage: 50 MG, DAILY
     Route: 048
  2. LIVACT [Concomitant]
     Route: 048
  3. URSO [Concomitant]
  4. KAYTWO [Concomitant]
  5. LASIX [Concomitant]

REACTIONS (1)
  - Hepatic function abnormal [Unknown]
